FAERS Safety Report 21385684 (Version 1)
Quarter: 2022Q3

REPORT INFORMATION
  Report Type: Spontaneous
  Country: US (occurrence: None)
  Receive Date: 20220926
  Receipt Date: 20220926
  Transmission Date: 20221027
  Serious: Yes (Other)
  Sender: FDA-Public Use
  Company Number: None

PATIENT
  Age: 75 Year
  Sex: Female
  Weight: 68.95 kg

DRUGS (5)
  1. VALSARTAN [Suspect]
     Active Substance: VALSARTAN
     Indication: Hypertension
     Dosage: OTHER QUANTITY : 1 TABLET/DAY;?FREQUENCY : DAILY;?
     Route: 048
     Dates: start: 20220428, end: 20220715
  2. SYNTHROID [Concomitant]
  3. METOPROLOL SUCCINATE [Concomitant]
     Active Substance: METOPROLOL SUCCINATE
  4. VIACTIVE CALCIUM MAX [Concomitant]
  5. VITAMIN D3 [Concomitant]
     Active Substance: CHOLECALCIFEROL

REACTIONS (9)
  - Adverse drug reaction [None]
  - Rash pruritic [None]
  - Rash erythematous [None]
  - Skin burning sensation [None]
  - Skin reaction [None]
  - Skin exfoliation [None]
  - Skin exfoliation [None]
  - Hypertension [None]
  - Drug ineffective [None]

NARRATIVE: CASE EVENT DATE: 20220810
